FAERS Safety Report 6171546-3 (Version None)
Quarter: 2009Q2

REPORT INFORMATION
  Report Type: 
  Country: None (occurrence: None)
  Receive Date: 20090428
  Receipt Date: 20090428
  Transmission Date: 20091009
  Serious: Yes (Other)
  Sender: FDA-Public Use
  Company Number: None

PATIENT
  Age: 39 Year
  Sex: Female
  Weight: 58.9676 kg

DRUGS (1)
  1. EVOXAC [Suspect]
     Indication: SJOGREN'S SYNDROME
     Dosage: 30 MG 3 TIMES/DAY PO
     Route: 048
     Dates: start: 20040101, end: 20090427

REACTIONS (1)
  - PRURITUS GENERALISED [None]
